FAERS Safety Report 8305093-7 (Version None)
Quarter: 2012Q1

REPORT INFORMATION
  Report Type: 
  Country: None (occurrence: None)
  Receive Date: 20120326
  Receipt Date: 20110602
  Transmission Date: 20120608
  Serious: Yes (Other)
  Sender: FDA-Public Use
  Company Number: PHHY2011US28582

PATIENT
  Age: 65 Year
  Sex: Male

DRUGS (1)
  1. TASIGNA [Suspect]
     Indication: CHRONIC MYELOID LEUKAEMIA
     Dosage: 300 MG, BID, ORAL, 400 MG, DAILY, ORAL
     Route: 048
     Dates: start: 20110215

REACTIONS (3)
  - BLOOD BILIRUBIN INCREASED [None]
  - VOMITING [None]
  - NAUSEA [None]
